FAERS Safety Report 11711248 (Version 1)
Quarter: 2015Q4

REPORT INFORMATION
  Report Type: Spontaneous
  Country: US (occurrence: US)
  Receive Date: 20151104
  Receipt Date: 20151104
  Transmission Date: 20160304
  Serious: No
  Sender: FDA-Public Use
  Company Number: US-ELI_LILLY_AND_COMPANY-US201104005356

PATIENT
  Age: 72 Year
  Sex: Female
  Weight: 85.71 kg

DRUGS (16)
  1. OMEGA 3 FISH OIL [Concomitant]
     Active Substance: FISH OIL\OMEGA-3 FATTY ACIDS
     Dosage: 1000 MG, QD
  2. MULTIVITAMIN [Concomitant]
     Active Substance: VITAMINS
  3. METOPROLOL [Concomitant]
     Active Substance: METOPROLOL
     Dosage: 25 MG, BID
  4. FORTEO [Suspect]
     Active Substance: TERIPARATIDE
     Indication: OSTEOPOROSIS
     Dosage: 20 UG, QD
     Route: 058
     Dates: start: 20110408
  5. LIPITOR [Concomitant]
     Active Substance: ATORVASTATIN CALCIUM
     Dosage: 20 MG, QD
  6. FAMOTIDINE. [Concomitant]
     Active Substance: FAMOTIDINE
     Dosage: 5 MG, QD
  7. CALTRATE WITH VITAMIN D [Concomitant]
     Active Substance: CALCIUM CARBONATE\CHOLECALCIFEROL
     Dosage: 600 MG, QD
  8. FORTEO [Suspect]
     Active Substance: TERIPARATIDE
     Dosage: 20 UG, QD
     Route: 058
     Dates: end: 20110410
  9. LEVOTHYROXINE. [Concomitant]
     Active Substance: LEVOTHYROXINE
     Dosage: 25 UG, QD
  10. VITAMIN D [Concomitant]
     Active Substance: CHOLECALCIFEROL
     Dosage: 2000 IU, QD
  11. CENTRUM SILVER [Concomitant]
     Active Substance: MINERALS\VITAMINS
     Dosage: UNK, QD
  12. CALCIUM [Concomitant]
     Active Substance: CALCIUM
  13. XANAX [Concomitant]
     Active Substance: ALPRAZOLAM
     Dosage: 0.5 DF, QD
  14. TYLENOL [Concomitant]
     Active Substance: ACETAMINOPHEN
     Dosage: 1000 MG, TID
  15. ASPIRIN. [Concomitant]
     Active Substance: ASPIRIN
     Dosage: 325 MG, QD
  16. LEXAPRO [Concomitant]
     Active Substance: ESCITALOPRAM OXALATE
     Dosage: 10 MG, QD

REACTIONS (12)
  - Syncope [Unknown]
  - Foot fracture [Recovered/Resolved]
  - Injury [Recovered/Resolved]
  - Fall [Recovered/Resolved]
  - Headache [Recovering/Resolving]
  - Contusion [Unknown]
  - Limb injury [Unknown]
  - Peripheral swelling [Unknown]
  - Pain in extremity [Unknown]
  - Dizziness [Recovered/Resolved]
  - Head injury [Unknown]
  - Haemorrhage [Unknown]

NARRATIVE: CASE EVENT DATE: 20110413
